FAERS Safety Report 8713605 (Version 3)
Quarter: 2012Q4

REPORT INFORMATION
  Report Type: 
  Country: GB (occurrence: GB)
  Receive Date: 20120808
  Receipt Date: 20121023
  Transmission Date: 20130627
  Serious: Yes (Other)
  Sender: FDA-Public Use
  Company Number: GB-ALEXION PHARMACEUTICALS INC.-A201201474

PATIENT
  Age: 54 Year
  Sex: Female

DRUGS (1)
  1. SOLIRIS 300MG [Suspect]
     Indication: PAROXYSMAL NOCTURNAL HAEMOGLOBINURIA
     Dosage: 1200 mg, q2w
     Route: 042
     Dates: start: 200904

REACTIONS (4)
  - Convulsion [Recovered/Resolved]
  - Lethargy [Unknown]
  - Lip haemorrhage [Unknown]
  - Lip swelling [Unknown]
